FAERS Safety Report 8388991-8 (Version None)
Quarter: 2012Q2

REPORT INFORMATION
  Report Type: 
  Country: None (occurrence: None)
  Receive Date: 20120528
  Receipt Date: 20120521
  Transmission Date: 20120825
  Serious: No
  Sender: FDA-Public Use
  Company Number: US-PFIZER INC-2012107830

PATIENT
  Sex: Female
  Weight: 104 kg

DRUGS (4)
  1. METOPROLOL [Concomitant]
     Dosage: UNK
  2. TYLENOL [Concomitant]
     Dosage: UNK, AS NEEDED
  3. IRON [Concomitant]
     Dosage: UNK, EVERY DAY
  4. SUTENT [Suspect]
     Dosage: 50 MG, CYCLIC
     Dates: start: 20120427

REACTIONS (6)
  - CHILLS [None]
  - BACK PAIN [None]
  - CHEST DISCOMFORT [None]
  - STOMATITIS [None]
  - DIARRHOEA [None]
  - LUNG DISORDER [None]
